FAERS Safety Report 11146658 (Version 2)
Quarter: 2015Q2

REPORT INFORMATION
  Report Type: Spontaneous
  Country: US (occurrence: PT)
  Receive Date: 20150528
  Receipt Date: 20150604
  Transmission Date: 20150821
  Serious: Yes (Other)
  Sender: FDA-Public Use
  Company Number: PT-FRI-1000076947

PATIENT
  Sex: Female

DRUGS (4)
  1. AZITHROMYCIN [Concomitant]
     Active Substance: AZITHROMYCIN ANHYDROUS
     Indication: PHARYNGITIS
     Dosage: 500 MG
     Dates: start: 20150414
  2. DEFLAZACORT [Concomitant]
     Active Substance: DEFLAZACORT
     Indication: CHRONIC OBSTRUCTIVE PULMONARY DISEASE
     Dosage: 18 MG
     Dates: start: 20150414
  3. AZITHROMYCIN [Concomitant]
     Active Substance: AZITHROMYCIN ANHYDROUS
     Indication: CHRONIC OBSTRUCTIVE PULMONARY DISEASE
  4. ACLIDINIUM [Suspect]
     Active Substance: ACLIDINIUM BROMIDE
     Indication: CHRONIC OBSTRUCTIVE PULMONARY DISEASE
     Dosage: 2 INHALATION DAY 12/12H
     Route: 055
     Dates: start: 20150414

REACTIONS (6)
  - Gingivitis [Unknown]
  - Pharyngitis [Unknown]
  - Adverse drug reaction [Recovered/Resolved]
  - Tongue discolouration [Unknown]
  - Tonsillitis [Unknown]
  - Cough [Unknown]
